FAERS Safety Report 9755689 (Version 1)
Quarter: 2013Q4

REPORT INFORMATION
  Report Type: Spontaneous
  Country: US (occurrence: US)
  Receive Date: 20131213
  Receipt Date: 20131213
  Transmission Date: 20140711
  Serious: No
  Sender: FDA-Public Use
  Company Number: US-GLAXOSMITHKLINE-A1022632A

PATIENT
  Age: 74 Year
  Sex: Female

DRUGS (9)
  1. EQUATE NTS 21MG [Suspect]
     Indication: EX-TOBACCO USER
  2. EQUATE NTS 14MG [Suspect]
     Indication: EX-TOBACCO USER
  3. EQUATE NTS 7MG [Suspect]
     Indication: EX-TOBACCO USER
  4. DULERA [Concomitant]
  5. DEXILANT [Concomitant]
  6. PRAVASTATIN [Concomitant]
  7. ALPRAZOLAM [Concomitant]
  8. SINGULAR [Concomitant]
  9. UNSPECIFIED MEDICATION [Concomitant]

REACTIONS (4)
  - Application site pruritus [Recovered/Resolved]
  - Dizziness [Recovered/Resolved]
  - Asthenia [Not Recovered/Not Resolved]
  - Drug administration error [Unknown]
